FAERS Safety Report 5973502-4 (Version None)
Quarter: 2008Q4

REPORT INFORMATION
  Report Type: 
  Country: None (occurrence: None)
  Receive Date: 20081201
  Receipt Date: 20081120
  Transmission Date: 20090506
  Serious: Yes (Death, Other)
  Sender: FDA-Public Use
  Company Number: US-AVENTIS-200817956US

PATIENT
  Sex: Female
  Weight: 90.72 kg

DRUGS (3)
  1. LOVENOX [Suspect]
     Dates: start: 20081103, end: 20080101
  2. COUMADIN [Concomitant]
     Dosage: DOSE: UNK
  3. ASPIRIN [Concomitant]

REACTIONS (3)
  - DEATH [None]
  - EMBOLISM [None]
  - HAEMATOMA [None]
